FAERS Safety Report 10172659 (Version 3)
Quarter: 2014Q2

REPORT INFORMATION
  Report Type: Report from Study
  Country: CA (occurrence: CA)
  Receive Date: 20140515
  Receipt Date: 20140626
  Transmission Date: 20141212
  Serious: Yes (Hospitalization, Other)
  Sender: FDA-Public Use
  Company Number: CA-ABBVIE-13P-028-1107707-00

PATIENT
  Age: 56 Year
  Sex: Female
  Weight: 59.02 kg

DRUGS (9)
  1. HUMIRA [Suspect]
     Indication: CROHN^S DISEASE
     Route: 058
     Dates: start: 20130220, end: 201307
  2. HUMIRA [Suspect]
     Dosage: LOADING DOSE
     Route: 058
     Dates: start: 20140617, end: 20140617
  3. METHOTREXATE [Concomitant]
     Indication: CROHN^S DISEASE
     Dates: end: 201307
  4. METHOTREXATE [Concomitant]
     Indication: ARTHRALGIA
  5. FOLIC ACID [Concomitant]
     Indication: PRODUCT USED FOR UNKNOWN INDICATION
  6. KETOROLAC [Concomitant]
     Indication: PRODUCT USED FOR UNKNOWN INDICATION
  7. PAROXETINE [Concomitant]
     Indication: PRODUCT USED FOR UNKNOWN INDICATION
  8. VITAMIN B [Concomitant]
     Indication: PRODUCT USED FOR UNKNOWN INDICATION
  9. PANTOLOC [Concomitant]
     Indication: ULCER

REACTIONS (4)
  - Gastrointestinal necrosis [Unknown]
  - Intestinal obstruction [Recovered/Resolved]
  - Crohn^s disease [Not Recovered/Not Resolved]
  - Abscess [Unknown]
